FAERS Safety Report 17897370 (Version 1)
Quarter: 2020Q2

REPORT INFORMATION
  Report Type: Spontaneous
  Country: JP (occurrence: JP)
  Receive Date: 20200615
  Receipt Date: 20200615
  Transmission Date: 20200714
  Serious: Yes (Hospitalization)
  Sender: FDA-Public Use
  Company Number: JP-ASTRAZENECA-2020SE72999

PATIENT
  Age: 44 Year
  Sex: Female

DRUGS (19)
  1. COLONEL [Concomitant]
     Active Substance: CALCIUM POLYCARBOPHIL
     Dosage: DOSE UNKNOWN
     Route: 048
  2. LOXONIN [Concomitant]
     Active Substance: LOXOPROFEN SODIUM
     Dosage: DOSE UNKNOWN
     Route: 062
  3. SILECE [Concomitant]
     Active Substance: FLUNITRAZEPAM
     Dosage: DOSE UNKNOWN
     Route: 048
  4. SERENACE [Concomitant]
     Active Substance: HALOPERIDOL
     Dosage: DOSE UNKNOWN
     Route: 048
  5. BUSCOPAN [Concomitant]
     Active Substance: BUTYLSCOPOLAMINE BROMIDE
     Dosage: DOSE UNKNOWN
     Route: 048
  6. FORXIGA [Suspect]
     Active Substance: DAPAGLIFLOZIN
     Indication: TYPE 2 DIABETES MELLITUS
     Route: 048
     Dates: start: 20140809, end: 20200601
  7. TSUMURA HANGESHASHINTO [Concomitant]
     Active Substance: HERBALS
     Dosage: DOSE UNKNOWN
     Route: 048
  8. AKINETON [Concomitant]
     Active Substance: BIPERIDEN HYDROCHLORIDE
     Dosage: DOSE UNKNOWN
     Route: 048
  9. HIRNAMIN [Concomitant]
     Active Substance: LEVOMEPROMAZINE
     Dosage: DOSE UNKNOWN
     Route: 048
  10. PHENOBAL [Concomitant]
     Active Substance: PHENOBARBITAL
     Dosage: DOSE UNKNOWN
     Route: 048
  11. HIBERNA [Concomitant]
     Active Substance: PROMETHAZINE HYDROCHLORIDE
     Dosage: DOSE UNKNOWN
     Route: 048
  12. GLACTIV [Concomitant]
     Active Substance: SITAGLIPTIN
     Indication: TYPE 2 DIABETES MELLITUS
     Dosage: 50.0MG UNKNOWN
     Route: 048
  13. TOVIAZ [Concomitant]
     Active Substance: FESOTERODINE FUMARATE
     Dosage: DOSE UNKNOWN
     Route: 048
  14. KENEI G ENEMA [Concomitant]
     Active Substance: GLYCERIN
     Dosage: DOSE UNKNOWN
     Route: 054
  15. RISPERDAL [Concomitant]
     Active Substance: RISPERIDONE
     Dosage: DOSE UNKNOWN
     Route: 048
  16. DEPAS [Concomitant]
     Dosage: DOSE UNKNOWN
     Route: 048
  17. LOPEMIN [Concomitant]
     Dosage: DOSE UNKNOWN
     Route: 048
  18. TAKECAB [Concomitant]
     Active Substance: VONOPRAZAN FUMARATE
     Dosage: DOSE UNKNOWN
     Route: 065
  19. DEPAKENE-R [Concomitant]
     Active Substance: VALPROATE SODIUM
     Dosage: DOSE UNKNOWN
     Route: 048

REACTIONS (1)
  - Cholecystitis [Unknown]

NARRATIVE: CASE EVENT DATE: 20200601
